FAERS Safety Report 7771751 (Version 2)
Quarter: 2020Q3

REPORT INFORMATION
  Report Type: Spontaneous
  Country: SE (occurrence: SE)
  Receive Date: 20110124
  Receipt Date: 20110203
  Transmission Date: 20201105
  Serious: Yes (Other)
  Sender: FDA-Public Use
  Company Number: SE-ROCHE-753692

PATIENT
  Age: 79 Year
  Sex: Female

DRUGS (7)
  1. OMEPRAZOLE. [Concomitant]
     Active Substance: OMEPRAZOLE
  2. IBUPROFEN. [Concomitant]
     Active Substance: IBUPROFEN
     Dosage: DRUG REPORTED: IBUMENTIN TABL 400 MG.
  3. FEMARA [Concomitant]
     Active Substance: LETROZOLE
     Dosage: DRUG REPORTED: FEMAR TABL 400 MG.
  4. ALVEDON [Concomitant]
     Dosage: DRUG REPORTED: ALVEDON FC TABL 500 MG.
  5. TRAMADOL. [Concomitant]
     Active Substance: TRAMADOL
  6. IBANDRONIC ACID. [Suspect]
     Active Substance: IBANDRONIC ACID
     Dosage: DOSE: 1 GMC.DRUG REPORTED: BONDRONAT CONC FOR SOL FOR INF 6 MG.
     Route: 065
     Dates: start: 2005
  7. ZOMETA [Suspect]
     Active Substance: ZOLEDRONIC ACID
     Route: 065
     Dates: start: 2005, end: 2005

REACTIONS (1)
  - Osteonecrosis [Recovered/Resolved]

NARRATIVE: CASE EVENT DATE: 20050720
